FAERS Safety Report 5947446-8 (Version None)
Quarter: 2008Q4

REPORT INFORMATION
  Report Type: 
  Country: None (occurrence: None)
  Receive Date: 20081110
  Receipt Date: 20081029
  Transmission Date: 20090506
  Serious: Yes (Other)
  Sender: FDA-Public Use
  Company Number: PHHY2008BR26736

PATIENT
  Age: 53 Year
  Sex: Female

DRUGS (10)
  1. DIOVAN HCT [Suspect]
     Indication: HYPERTENSION
     Dosage: 1 DF, QD
     Route: 048
     Dates: start: 20080801
  2. PROPRANOLOL [Concomitant]
     Indication: ARRHYTHMIA
     Dosage: 2 DF, QD
     Route: 048
  3. MONOCORDIL [Concomitant]
     Indication: CHEST PAIN
     Dosage: 1 DF, QD
     Route: 048
  4. ASPIRIN [Concomitant]
     Indication: COAGULOPATHY
     Dosage: 1 DF, QD
     Route: 048
  5. VASTAREL ^BIOPHARMA^ [Concomitant]
     Dosage: 20 MG, TID
  6. RANITIDINE [Concomitant]
     Indication: GASTRIC DISORDER
     Dosage: 150 MG, QD
  7. ACETAMINOPHEN [Concomitant]
     Indication: HERNIA
     Dosage: UNK
  8. CHLOROQUINE [Concomitant]
     Indication: HERNIA
     Dosage: UNK
  9. MELOXICAM [Concomitant]
     Indication: HERNIA
     Dosage: UNK
  10. LEXOTAN [Concomitant]
     Indication: IRRITABILITY
     Dosage: 1 DF, QD
     Route: 048

REACTIONS (5)
  - CEREBROVASCULAR ACCIDENT [None]
  - HYPOAESTHESIA [None]
  - IRRITABILITY [None]
  - PAIN [None]
  - SWELLING [None]
